FAERS Safety Report 5824677-9 (Version None)
Quarter: 2008Q3

REPORT INFORMATION
  Report Type: 
  Country: None (occurrence: None)
  Receive Date: 20080728
  Receipt Date: 20080715
  Transmission Date: 20090109
  Serious: Yes (Other)
  Sender: FDA-Public Use
  Company Number: US-ELI_LILLY_AND_COMPANY-US200807003259

PATIENT
  Age: 34 Year
  Sex: Male

DRUGS (9)
  1. CYMBALTA [Suspect]
     Dosage: 60 MG, DAILY (1/D)
  2. ETHANOL [Concomitant]
  3. AMBIEN [Concomitant]
     Dosage: 20 MG, 2/D
  4. XANAX [Concomitant]
     Dosage: 4 MG, UNK
  5. XANAX [Concomitant]
     Dosage: 6 MG, UNK
  6. PHENERGAN HCL [Concomitant]
  7. ZOLOFT [Concomitant]
     Dosage: 150 MG, DAILY (1/D)
  8. TRAZODONE HCL [Concomitant]
     Dosage: 70 MG, DAILY (1/D)
  9. TRAZODONE HCL [Concomitant]
     Dosage: 150 MG, DAILY (1/D)

REACTIONS (5)
  - AMNESIA [None]
  - DRUG ABUSE [None]
  - IMPRISONMENT [None]
  - SLEEP SEX [None]
  - SLEEP-RELATED EATING DISORDER [None]
